FAERS Safety Report 9193301 (Version 1)
Quarter: 2013Q1

REPORT INFORMATION
  Report Type: Spontaneous
  Country: US (occurrence: US)
  Receive Date: 20130327
  Receipt Date: 20130327
  Transmission Date: 20140127
  Serious: No
  Sender: FDA-Public Use
  Company Number: US-TEVA-394879USA

PATIENT
  Age: 32 Year
  Sex: Male

DRUGS (3)
  1. ACTIQ [Suspect]
  2. PROPRANOLOL [Suspect]
  3. NITROGLYCERIN [Suspect]

REACTIONS (1)
  - Medication error [Unknown]
